FAERS Safety Report 6100698-6 (Version None)
Quarter: 2009Q1

REPORT INFORMATION
  Report Type: 
  Country: None (occurrence: None)
  Receive Date: 20090303
  Receipt Date: 20090223
  Transmission Date: 20090719
  Serious: Yes (Life-Threatening, Hospitalization, Other)
  Sender: FDA-Public Use
  Company Number: JP-ABBOTT-09P-087-0501942-00

PATIENT
  Sex: Male
  Weight: 49 kg

DRUGS (5)
  1. KLARICID TABLETS [Suspect]
     Indication: UPPER RESPIRATORY TRACT INFLAMMATION
     Route: 048
     Dates: start: 20090109, end: 20090111
  2. KLARICID TABLETS [Suspect]
     Indication: SYSTEMIC INFLAMMATORY RESPONSE SYNDROME
  3. CALONAL [Concomitant]
     Indication: DRUG USE FOR UNKNOWN INDICATION
     Dosage: UNKNOWN DAILY DOSE
     Route: 048
     Dates: start: 20090109, end: 20090116
  4. DICLOFENAC SODIUM [Concomitant]
     Indication: DRUG USE FOR UNKNOWN INDICATION
     Dosage: UNKNOWN DAILY DOSE
     Route: 054
     Dates: start: 20090112, end: 20090116
  5. ROCEPHIN [Concomitant]
     Indication: DRUG USE FOR UNKNOWN INDICATION
     Dosage: UNKNOWN DAILY DOSE
     Route: 042
     Dates: start: 20090112, end: 20090116

REACTIONS (8)
  - ATRIOVENTRICULAR BLOCK [None]
  - C-REACTIVE PROTEIN INCREASED [None]
  - CARDIAC FAILURE CONGESTIVE [None]
  - ERYTHEMA MULTIFORME [None]
  - PROTEIN TOTAL DECREASED [None]
  - SICK SINUS SYNDROME [None]
  - SYSTEMIC INFLAMMATORY RESPONSE SYNDROME [None]
  - WHITE BLOOD CELL COUNT INCREASED [None]
